FAERS Safety Report 6882067-4 (Version None)
Quarter: 2010Q3

REPORT INFORMATION
  Report Type: 
  Country: None (occurrence: None)
  Receive Date: 20100727
  Receipt Date: 20100721
  Transmission Date: 20110219
  Serious: Yes (Hospitalization)
  Sender: FDA-Public Use
  Company Number: 2009SP035409

PATIENT
  Age: 41 Year
  Sex: Female
  Weight: 160 kg

DRUGS (2)
  1. NUVARING [Suspect]
     Indication: CONTRACEPTION
     Dosage: VAG
     Route: 067
     Dates: start: 20070101, end: 20071101
  2. LEVOTHYROXINE [Concomitant]

REACTIONS (10)
  - ANTIPHOSPHOLIPID ANTIBODIES POSITIVE [None]
  - ANTIPHOSPHOLIPID SYNDROME [None]
  - BETA-2 GLYCOPROTEIN ANTIBODY POSITIVE [None]
  - BITE [None]
  - CARDIOLIPIN ANTIBODY POSITIVE [None]
  - CELLULITIS [None]
  - DEEP VEIN THROMBOSIS [None]
  - HYPOCOAGULABLE STATE [None]
  - LIMB DISCOMFORT [None]
  - OEDEMA PERIPHERAL [None]
